FAERS Safety Report 4781043-5 (Version None)
Quarter: 2005Q3

REPORT INFORMATION
  Report Type: 
  Country: None (occurrence: None)
  Receive Date: 20050927
  Receipt Date: 20050927
  Transmission Date: 20060218
  Serious: Yes (Hospitalization)
  Sender: FDA-Public Use
  Company Number: None

PATIENT
  Sex: Male
  Weight: 70 kg

DRUGS (4)
  1. ABCIXIMAB INJ 10 MG/ 5 ML SOLN 05/29/2005 [Suspect]
     Dosage: 7 MG/250 MLS AT 21 MLS/HR
     Dates: start: 20050529
  2. PEXELIZUMAB/PLACEBO BOLUS (APEX-AMI STUDY) [Concomitant]
  3. HEPARIN [Concomitant]
  4. ASPIRIN [Concomitant]

REACTIONS (1)
  - HAEMOPTYSIS [None]
